FAERS Safety Report 7885054-2 (Version None)
Quarter: 2011Q4

REPORT INFORMATION
  Report Type: 
  Country: None (occurrence: None)
  Receive Date: 20111102
  Receipt Date: 20100630
  Transmission Date: 20120403
  Serious: No
  Sender: FDA-Public Use
  Company Number: US-BAYER-201026931NA

PATIENT
  Sex: Male

DRUGS (2)
  1. DEXAMETHASONE [Concomitant]
  2. AVELOX [Suspect]
     Indication: SINUSITIS
     Dosage: UNK

REACTIONS (2)
  - TENDONITIS [None]
  - ARTHRALGIA [None]
